FAERS Safety Report 11825765 (Version 1)
Quarter: 2015Q4

REPORT INFORMATION
  Report Type: Report from Study
  Country: BR (occurrence: BR)
  Receive Date: 20151211
  Receipt Date: 20151211
  Transmission Date: 20160305
  Serious: Yes (Other)
  Sender: FDA-Public Use
  Company Number: BR-ABBVIE-15K-020-1513131-00

PATIENT
  Age: 60 Year
  Sex: Male
  Weight: 85 kg

DRUGS (1)
  1. HUMIRA [Suspect]
     Active Substance: ADALIMUMAB
     Indication: RHEUMATOID ARTHRITIS
     Route: 058
     Dates: start: 20120109

REACTIONS (8)
  - Pruritus [Unknown]
  - Pruritus [Unknown]
  - Acne [Unknown]
  - Dermatitis allergic [Recovering/Resolving]
  - Secretion discharge [Unknown]
  - Skin cancer [Recovering/Resolving]
  - Drug effect decreased [Unknown]
  - Pain in extremity [Recovered/Resolved]

NARRATIVE: CASE EVENT DATE: 2014
